FAERS Safety Report 6479486-7 (Version None)
Quarter: 2009Q4

REPORT INFORMATION
  Report Type: 
  Country: None (occurrence: None)
  Receive Date: 20091207
  Receipt Date: 20091207
  Transmission Date: 20100525
  Serious: Yes (Other)
  Sender: FDA-Public Use
  Company Number: None

PATIENT
  Age: 56 Year
  Sex: Female
  Weight: 58.0604 kg

DRUGS (2)
  1. ACTONEL [Suspect]
     Indication: BONE DENSITY DECREASED
     Dosage: 1 PILL EACH MO. MONTHLY ORAL
     Route: 048
     Dates: start: 20091129
  2. ACTONEL [Suspect]
     Indication: URINE ANALYSIS ABNORMAL
     Dosage: 1 PILL EACH MO. MONTHLY ORAL
     Route: 048
     Dates: start: 20091129

REACTIONS (2)
  - MYALGIA [None]
  - PYREXIA [None]
